FAERS Safety Report 12272260 (Version 1)
Quarter: 2016Q2

REPORT INFORMATION
  Report Type: Spontaneous
  Country: IN (occurrence: IN)
  Receive Date: 20160415
  Receipt Date: 20160415
  Transmission Date: 20160815
  Serious: Yes (Other)
  Sender: FDA-Public Use
  Company Number: ALCN2016IN002483

PATIENT
  Age: 62 Year
  Sex: Female
  Weight: 60 kg

DRUGS (5)
  1. PREDNISOLONE ACETATE. [Concomitant]
     Active Substance: PREDNISOLONE ACETATE
     Indication: POSTOPERATIVE CARE
     Dosage: UNK GTT, UNK
     Route: 047
     Dates: start: 20160212, end: 20160325
  2. NEVANAC [Suspect]
     Active Substance: NEPAFENAC
     Dosage: 1 GTT, BID
     Route: 047
     Dates: start: 20160215, end: 20160318
  3. SYSTANE ULTRA [Concomitant]
     Active Substance: POLYETHYLENE GLYCOL 400\PROPYLENE GLYCOL
     Indication: POSTOPERATIVE CARE
     Dosage: 1 GTT, QID
     Route: 047
     Dates: start: 20160212, end: 20160408
  4. NEVANAC [Suspect]
     Active Substance: NEPAFENAC
     Indication: PUNCTATE KERATITIS
     Dosage: 1 GTT, BID
     Route: 047
     Dates: start: 20160209, end: 20160318
  5. VIGAMOX [Concomitant]
     Active Substance: MOXIFLOXACIN HYDROCHLORIDE
     Indication: POSTOPERATIVE CARE
     Dosage: 1 GTT, QID
     Route: 047
     Dates: start: 20160209, end: 20160223

REACTIONS (4)
  - Incorrect drug administration rate [Recovered/Resolved]
  - Product use issue [Recovered/Resolved]
  - Vision blurred [Recovered/Resolved]
  - Incorrect drug administration duration [Recovered/Resolved]

NARRATIVE: CASE EVENT DATE: 20160209
